FAERS Safety Report 13395438 (Version 2)
Quarter: 2017Q2

REPORT INFORMATION
  Report Type: Spontaneous
  Country: US (occurrence: US)
  Receive Date: 20170403
  Receipt Date: 20170612
  Transmission Date: 20170830
  Serious: Yes (Life-Threatening, Hospitalization)
  Sender: FDA-Public Use
  Company Number: US-PROCTER+GAMBLE-GS17034152

PATIENT
  Age: 30 Year
  Sex: Male

DRUGS (6)
  1. QUETIAPINE. [Suspect]
     Active Substance: QUETIAPINE
  2. DEXTROMETHORPHAN [Suspect]
     Active Substance: DEXTROMETHORPHAN
  3. DIPHENHYDRAMINE HCL [Suspect]
     Active Substance: DIPHENHYDRAMINE HYDROCHLORIDE
  4. U47700 [Suspect]
     Active Substance: U-47700
     Route: 048
  5. HYDROXYZINE [Suspect]
     Active Substance: HYDROXYZINE HYDROCHLORIDE
  6. PAROXETINE. [Suspect]
     Active Substance: PAROXETINE

REACTIONS (9)
  - Drug use disorder [Unknown]
  - Hypoxia [Recovered/Resolved]
  - Somnolence [Recovered/Resolved]
  - Hypotension [Recovered/Resolved]
  - Aspiration [Recovered/Resolved]
  - Respiratory disorder [Recovered/Resolved]
  - Overdose [Recovered/Resolved]
  - Drug screen positive [Unknown]
  - Labelled drug-drug interaction medication error [Unknown]
